FAERS Safety Report 7157014-0 (Version None)
Quarter: 2010Q4

REPORT INFORMATION
  Report Type: 
  Country: None (occurrence: None)
  Receive Date: 20101214
  Receipt Date: 20100126
  Transmission Date: 20110411
  Serious: No
  Sender: FDA-Public Use
  Company Number: US-ASTRAZENECA-2010SE03545

PATIENT
  Age: 71 Year
  Sex: Male
  Weight: 65.8 kg

DRUGS (4)
  1. CRESTOR [Suspect]
     Route: 048
     Dates: start: 20100113
  2. GLIPIZIDE [Concomitant]
  3. DIOVAN [Concomitant]
  4. AMLODIPINE [Concomitant]

REACTIONS (2)
  - COUGH [None]
  - INCREASED UPPER AIRWAY SECRETION [None]
